FAERS Safety Report 4724005-6 (Version None)
Quarter: 2005Q3

REPORT INFORMATION
  Report Type: 
  Country: None (occurrence: None)
  Receive Date: 20050721
  Receipt Date: 20050708
  Transmission Date: 20060218
  Serious: Yes (Hospitalization)
  Sender: FDA-Public Use
  Company Number: 215743

PATIENT
  Age: 77 Year
  Sex: Female
  Weight: 30.5 kg

DRUGS (8)
  1. AVASTIN [Suspect]
     Indication: COLON CANCER
     Dosage: 5 MG/KG, Q2W, INTRAVENOUS
     Route: 042
     Dates: start: 20041101, end: 20041215
  2. OXALIPLATIN (OXALIPLATIN) [Suspect]
     Indication: COLON CANCER
     Dosage: 85 MG/M2, DAY 1, INTRAVENOUS
     Route: 042
     Dates: start: 20041101, end: 20050412
  3. LEUCOVORIN CALCIUM [Concomitant]
  4. FLUOROURACIL [Concomitant]
  5. NEXIUM [Concomitant]
  6. CELEBREX [Concomitant]
  7. ZETIA [Concomitant]
  8. TOPROL (METOPROLOL SUCCINATE) [Concomitant]

REACTIONS (3)
  - CHEST PAIN [None]
  - HYPERTENSION [None]
  - PULMONARY FIBROSIS [None]
